FAERS Safety Report 5988278-4 (Version None)
Quarter: 2008Q4

REPORT INFORMATION
  Report Type: 
  Country: None (occurrence: None)
  Receive Date: 20081210
  Receipt Date: 20081129
  Transmission Date: 20090506
  Serious: Yes (Other)
  Sender: FDA-Public Use
  Company Number: US-PFIZER INC-2008101256

PATIENT
  Age: 82 Year
  Sex: Female
  Weight: 48.98 kg

DRUGS (3)
  1. LIPITOR [Suspect]
     Indication: BLOOD CHOLESTEROL
     Dosage: 80 MG, 1X/DAY
     Dates: start: 19950101, end: 20081119
  2. LISINOPRIL AND HYDROCHLOROTHIAZIDE [Suspect]
     Indication: HYPERTENSION
     Dosage: 20 MG, 1X/DAY
     Dates: start: 20081001
  3. LISINOPRIL [Concomitant]
     Dates: end: 20081001

REACTIONS (9)
  - DIABETES MELLITUS [None]
  - FATIGUE [None]
  - FEELING ABNORMAL [None]
  - HAEMATOCRIT DECREASED [None]
  - LYMPHOCYTE COUNT DECREASED [None]
  - MALAISE [None]
  - NECK PAIN [None]
  - NEUTROPHIL COUNT INCREASED [None]
  - PAIN [None]
